FAERS Safety Report 24876995 (Version 3)
Quarter: 2025Q1

REPORT INFORMATION
  Report Type: Report from Study
  Country: US (occurrence: US)
  Receive Date: 20250123
  Receipt Date: 20250318
  Transmission Date: 20250409
  Serious: Yes (Hospitalization, Other)
  Sender: ABBVIE
  Company Number: US-ABBVIE-6097001

PATIENT
  Age: 72 Year
  Sex: Male

DRUGS (3)
  1. VENCLEXTA [Suspect]
     Active Substance: VENETOCLAX
     Indication: Acute lymphocytic leukaemia
     Dosage: FOUR TABLETS WITH MEAL AND WATER AT THE SAME TIME EACH DAY (SWALLOW WHOLE?STRENGTH: 100 MG
     Route: 048
     Dates: start: 20250220
  2. VENCLEXTA [Suspect]
     Active Substance: VENETOCLAX
     Indication: Acute lymphocytic leukaemia
     Dosage: TWO TABLETS WITH MEAL AND WATER AT THE SAME TIME EACH DAY (SWALLOW WHOLE
     Route: 048
  3. VENCLEXTA [Suspect]
     Active Substance: VENETOCLAX
     Indication: Acute lymphocytic leukaemia
     Dosage: TAKEN 4 TABLETS
     Route: 048
     Dates: start: 20200131

REACTIONS (10)
  - Hip arthroplasty [Unknown]
  - Illness [Unknown]
  - Off label use [Unknown]
  - Memory impairment [Unknown]
  - Pneumonia [Unknown]
  - Atrial fibrillation [Unknown]
  - Procedural pain [Unknown]
  - Extra dose administered [Unknown]
  - Pulmonary embolism [Unknown]
  - Metastatic neoplasm [Unknown]

NARRATIVE: CASE EVENT DATE: 20250220
